FAERS Safety Report 13221899 (Version 2)
Quarter: 2017Q1

REPORT INFORMATION
  Report Type: Spontaneous
  Country: IT (occurrence: IT)
  Receive Date: 20170211
  Receipt Date: 20170323
  Transmission Date: 20170428
  Serious: Yes (Other)
  Sender: FDA-Public Use
  Company Number: IT-BIOGEN-2017BI00354612

PATIENT
  Age: 38 Year
  Sex: Female

DRUGS (1)
  1. PLEGRIDY [Suspect]
     Active Substance: PEGINTERFERON BETA-1A
     Indication: MULTIPLE SCLEROSIS
     Route: 058
     Dates: start: 20151029, end: 20160921

REACTIONS (8)
  - Crying [Recovered/Resolved]
  - Injection site erythema [Recovered/Resolved]
  - Lymphopenia [Recovered/Resolved]
  - Influenza like illness [Recovered/Resolved]
  - Depressed mood [Recovered/Resolved]
  - Pain [Recovered/Resolved]
  - Injection site oedema [Recovered/Resolved]
  - Leukopenia [Recovered/Resolved]

NARRATIVE: CASE EVENT DATE: 20160712
